FAERS Safety Report 7795970 (Version 5)
Quarter: 2012Q4

REPORT INFORMATION
  Report Type: Report from Study
  Country: JP (occurrence: JP)
  Receive Date: 20110202
  Receipt Date: 20121005
  Transmission Date: 20130627
  Serious: Yes (Hospitalization, Other)
  Sender: FDA-Public Use
  Company Number: JP-ROCHE-756131

PATIENT
  Age: 72 None
  Sex: Male

DRUGS (41)
  1. ROACTEMRA [Suspect]
     Indication: RHEUMATOID ARTHRITIS
     Route: 041
     Dates: start: 20090114, end: 20090114
  2. ROACTEMRA [Suspect]
     Route: 041
     Dates: start: 20090212, end: 20090212
  3. ROACTEMRA [Suspect]
     Route: 041
     Dates: start: 20090311, end: 20090311
  4. ROACTEMRA [Suspect]
     Route: 041
     Dates: start: 20090408, end: 20090408
  5. ROACTEMRA [Suspect]
     Route: 041
     Dates: start: 20090507, end: 20090507
  6. ROACTEMRA [Suspect]
     Route: 041
     Dates: start: 20090603, end: 20090603
  7. ROACTEMRA [Suspect]
     Route: 041
     Dates: start: 20090701, end: 20090701
  8. ROACTEMRA [Suspect]
     Route: 041
     Dates: start: 20090729, end: 20100729
  9. ROACTEMRA [Suspect]
     Route: 041
     Dates: start: 20090826, end: 20100826
  10. ROACTEMRA [Suspect]
     Route: 041
     Dates: start: 20090924, end: 20100924
  11. ROACTEMRA [Suspect]
     Route: 041
     Dates: start: 20091021, end: 20101021
  12. ROACTEMRA [Suspect]
     Route: 041
     Dates: start: 20091118, end: 20101118
  13. ROACTEMRA [Suspect]
     Route: 041
     Dates: start: 20091216, end: 20101216
  14. ROACTEMRA [Suspect]
     Route: 041
     Dates: start: 20100113, end: 20110113
  15. ROACTEMRA [Suspect]
     Route: 041
     Dates: start: 20100210, end: 20100210
  16. ROACTEMRA [Suspect]
     Route: 041
     Dates: start: 20100310, end: 20100310
  17. ROACTEMRA [Suspect]
     Route: 041
     Dates: start: 20100331, end: 20100331
  18. ROACTEMRA [Suspect]
     Route: 041
     Dates: start: 20100428, end: 20100428
  19. ROACTEMRA [Suspect]
     Route: 041
     Dates: start: 20100526, end: 20100526
  20. ROACTEMRA [Suspect]
     Route: 041
     Dates: start: 20100623, end: 20100623
  21. ROACTEMRA [Suspect]
     Route: 041
     Dates: start: 20100721, end: 20100721
  22. ROACTEMRA [Suspect]
     Route: 041
     Dates: start: 20100818, end: 20100818
  23. ROACTEMRA [Suspect]
     Route: 041
     Dates: start: 20100915, end: 20100915
  24. ROACTEMRA [Suspect]
     Route: 041
     Dates: start: 20101013, end: 20101013
  25. ROACTEMRA [Suspect]
     Route: 041
     Dates: start: 20101110, end: 20101110
  26. ROACTEMRA [Suspect]
     Route: 041
     Dates: start: 20101208, end: 20101208
  27. ROACTEMRA [Suspect]
     Route: 041
     Dates: start: 20110105, end: 20110105
  28. ROACTEMRA [Suspect]
     Route: 041
  29. PREDNISOLONE [Suspect]
     Indication: RHEUMATOID ARTHRITIS
     Route: 048
  30. PREDNISOLONE [Suspect]
     Route: 048
     Dates: start: 20090311, end: 20090924
  31. PREDNISOLONE [Suspect]
     Route: 048
  32. RHEUMATREX [Suspect]
     Indication: RHEUMATOID ARTHRITIS
     Route: 048
     Dates: start: 20090730, end: 20100113
  33. CYTOTEC [Concomitant]
     Indication: GASTRITIS
     Route: 048
  34. HYPEN [Concomitant]
     Indication: RHEUMATOID ARTHRITIS
     Route: 048
  35. BONALON [Concomitant]
     Indication: OSTEOPOROSIS
     Route: 048
  36. VOLTAREN [Concomitant]
     Indication: RHEUMATOID ARTHRITIS
     Dosage: SINGLE USE, DOSAGE DURING A DAY: 25 MG
     Route: 054
  37. HALCION [Concomitant]
     Indication: INSOMNIA
     Dosage: AS NEEDED 0.25 MG A DAY
     Route: 048
  38. PARIET [Concomitant]
     Indication: GASTRITIS
     Route: 048
  39. FOLIAMIN [Concomitant]
     Indication: PROPHYLAXIS
     Route: 048
     Dates: start: 20090730, end: 20100113
  40. SULFAMETHOXAZOLE/TRIMETHOPRIM [Concomitant]
     Indication: PROPHYLAXIS
     Route: 048
     Dates: start: 20090730, end: 20100113
  41. DEPAS [Concomitant]
     Route: 048

REACTIONS (9)
  - Angina pectoris [Recovered/Resolved]
  - Prostate cancer [Not Recovered/Not Resolved]
  - Coronary artery stenosis [Unknown]
  - Arthritis [Recovered/Resolved]
  - Chest pain [Recovering/Resolving]
  - Chest pain [Unknown]
  - Chest pain [Unknown]
  - Blood cholesterol increased [Recovered/Resolved]
  - Eczema [Recovering/Resolving]
